FAERS Safety Report 6309105-1 (Version None)
Quarter: 2009Q3

REPORT INFORMATION
  Report Type: 
  Country: None (occurrence: None)
  Receive Date: 20090812
  Receipt Date: 20090729
  Transmission Date: 20100115
  Serious: Yes (Disabling, Other)
  Sender: FDA-Public Use
  Company Number: ADE2009-0748

PATIENT
  Age: 31 Year
  Sex: Female
  Weight: 57 kg

DRUGS (6)
  1. MIRTAZAPINE [Suspect]
     Indication: DEPRESSION
     Dosage: 15MG-ORAL
     Route: 048
     Dates: start: 20090516, end: 20090619
  2. FLUOXETINE [Suspect]
     Indication: DEPRESSION
     Dosage: 20MG-ORAL
     Route: 048
     Dates: start: 20090516, end: 20090619
  3. NITRAZEPAM [Concomitant]
  4. DIAZEPAM [Concomitant]
  5. NAPROXEN [Concomitant]
  6. OMEPRAZOLE [Concomitant]

REACTIONS (2)
  - GAIT DISTURBANCE [None]
  - OEDEMA PERIPHERAL [None]
